FAERS Safety Report 7917531-X (Version None)
Quarter: 2011Q4

REPORT INFORMATION
  Report Type: 
  Country: None (occurrence: None)
  Receive Date: 20111116
  Receipt Date: 20111111
  Transmission Date: 20120403
  Serious: Yes (Other)
  Sender: FDA-Public Use
  Company Number: DK-PFIZER INC-2010157670

PATIENT
  Age: 70 Year
  Sex: Male

DRUGS (7)
  1. SUNITINIB MALATE [Suspect]
     Indication: METASTATIC RENAL CELL CARCINOMA
     Dosage: 25-50 MG 4/2 SCHEDULE
     Route: 048
     Dates: start: 20091207
  2. OMEPRAZOLE [Concomitant]
     Dosage: 40 MG, 1X/DAY
  3. ZOLEDRONIC ACID [Suspect]
     Indication: METASTASES TO BONE
     Dosage: 4 MG, EVERY 6 WEEKS
     Dates: start: 20100301, end: 20100301
  4. PREDNISOLONE [Concomitant]
     Dosage: 25 MG, 1X/DAY
  5. ESCITALOPRAM [Concomitant]
     Indication: DEPRESSION
     Dosage: 5 MG, 1X/DAY
  6. AMLODIPINE [Concomitant]
     Indication: HYPERTENSION
     Dosage: 10 MG, 1X/DAY
  7. REMERON [Concomitant]
     Indication: DEPRESSION
     Dosage: 15 MG, 1X/DAY

REACTIONS (1)
  - OSTEONECROSIS OF JAW [None]
